FAERS Safety Report 16131187 (Version 8)
Quarter: 2020Q1

REPORT INFORMATION
  Report Type: Report from Study
  Country: US (occurrence: US)
  Receive Date: 20190328
  Receipt Date: 20200327
  Transmission Date: 20200409
  Serious: Yes (Hospitalization)
  Sender: FDA-Public Use
  Company Number: US-ACTELION-A-NJ2017-156243

PATIENT
  Age: 43 Year
  Sex: Female
  Weight: 71.2 kg

DRUGS (5)
  1. REVATIO [Concomitant]
     Active Substance: SILDENAFIL CITRATE
  2. FLOLAN [Concomitant]
     Active Substance: EPOPROSTENOL SODIUM
  3. EPOPROSTENOL. [Suspect]
     Active Substance: EPOPROSTENOL
     Indication: PRODUCT USED FOR UNKNOWN INDICATION
     Dosage: UNK
     Route: 065
  4. XARELTO [Concomitant]
     Active Substance: RIVAROXABAN
  5. TRACLEER [Suspect]
     Active Substance: BOSENTAN
     Indication: PULMONARY ARTERIAL HYPERTENSION
     Dosage: 125 MG, BID
     Route: 048

REACTIONS (20)
  - Chest discomfort [Unknown]
  - Asthma [Unknown]
  - Pain [Recovering/Resolving]
  - Pneumonia [Unknown]
  - Influenza [Unknown]
  - Dizziness [Recovering/Resolving]
  - Insomnia [Unknown]
  - Dyspnoea [Recovering/Resolving]
  - Nasal congestion [Unknown]
  - Malaise [Recovering/Resolving]
  - Nasopharyngitis [Unknown]
  - Cough [Unknown]
  - Feeling hot [Unknown]
  - Iron deficiency [Unknown]
  - Corona virus infection [Unknown]
  - Sinusitis [Unknown]
  - Sinus congestion [Unknown]
  - Device leakage [Recovering/Resolving]
  - Product dose omission [Unknown]
  - Rhinovirus infection [Unknown]

NARRATIVE: CASE EVENT DATE: 201706
